FAERS Safety Report 9044483 (Version 1)
Quarter: 2013Q1

REPORT INFORMATION
  Report Type: Spontaneous
  Country: US (occurrence: US)
  Receive Date: 20130130
  Receipt Date: 20130130
  Transmission Date: 20140127
  Serious: Yes (Other)
  Sender: FDA-Public Use
  Company Number: US-OTSUKA-US-2013-10109

PATIENT
  Age: 49 Year
  Sex: Female

DRUGS (2)
  1. SAMSCA [Suspect]
     Indication: BLOOD SODIUM DECREASED
     Dosage: 15 MG MILLIGRAM(S), UNK
     Dates: start: 20130109, end: 20130113
  2. MULTIVITAMINS [Suspect]

REACTIONS (4)
  - Blood sodium increased [Unknown]
  - Asthenia [Unknown]
  - Decreased appetite [Unknown]
  - Drug administration error [None]
